FAERS Safety Report 4347783-7 (Version None)
Quarter: 2004Q2

REPORT INFORMATION
  Report Type: 
  Country: None (occurrence: None)
  Receive Date: 20040422
  Receipt Date: 20040406
  Transmission Date: 20050107
  Serious: Yes (Other)
  Sender: FDA-Public Use
  Company Number: 205089

PATIENT
  Age: 56 Year
  Sex: Female

DRUGS (8)
  1. HERCEPTIN [Suspect]
     Indication: BREAST CANCER
     Dosage: 4 MG/KG, SINGLE, INTRAVENOUS
     Route: 042
  2. HERCEPTIN [Suspect]
     Dosage: 2 MG/KG, 1/WEEK, INTRAVENOUS
     Route: 042
  3. HERCEPTIN [Suspect]
     Dosage: 515 MG, Q3W, INTRAVENOUS
     Route: 042
     Dates: start: 20040112
  4. TAXOTERE [Concomitant]
  5. CARBOPLATIN [Concomitant]
  6. TYLENOL [Concomitant]
  7. ATACAND [Concomitant]
  8. BENADRYL [Concomitant]

REACTIONS (7)
  - ARRHYTHMIA [None]
  - CHEST PAIN [None]
  - DYSPNOEA EXERTIONAL [None]
  - ELECTROCARDIOGRAM ST-T CHANGE [None]
  - ELECTROCARDIOGRAM T WAVE ABNORMAL [None]
  - MALAISE [None]
  - PALPITATIONS [None]
